FAERS Safety Report 11727451 (Version 1)
Quarter: 2015Q4

REPORT INFORMATION
  Report Type: Spontaneous
  Country: US (occurrence: US)
  Receive Date: 20151112
  Receipt Date: 20151112
  Transmission Date: 20160304
  Serious: No
  Sender: FDA-Public Use
  Company Number: US-009507513-1511USA000437

PATIENT
  Sex: Female

DRUGS (1)
  1. NEXPLANON [Suspect]
     Active Substance: ETONOGESTREL
     Dosage: ONE INSERT/ ONCE PER THREE YEARS
     Route: 059

REACTIONS (2)
  - Incorrect drug administration duration [Unknown]
  - Headache [Not Recovered/Not Resolved]
